FAERS Safety Report 7432356-X (Version None)
Quarter: 2011Q2

REPORT INFORMATION
  Report Type: 
  Country: None (occurrence: None)
  Receive Date: 20110422
  Receipt Date: 20110405
  Transmission Date: 20111010
  Serious: Yes (Hospitalization, Other)
  Sender: FDA-Public Use
  Company Number: US-AMGEN-QUU396201

PATIENT
  Age: 44 Year
  Sex: Female
  Weight: 85.714 kg

DRUGS (32)
  1. PROCRIT [Suspect]
     Indication: ANAEMIA OF CHRONIC DISEASE
     Dosage: UNK
     Dates: start: 20090101
  2. NOVOLOG [Concomitant]
     Dosage: UNK UNK, BID
     Route: 058
  3. LIPITOR [Concomitant]
  4. LEXAPRO [Concomitant]
     Dosage: 30 MG, QD
     Route: 048
  5. METHOTREXATE [Concomitant]
     Dosage: 15 MG, QWK
     Route: 058
     Dates: start: 20050601, end: 20080301
  6. METOPROLOL TARTRATE [Concomitant]
     Dosage: 12.5 MG, BID
     Route: 048
  7. PROTONIX [Concomitant]
     Dosage: 40 MG, QD
     Route: 048
  8. ENBREL [Suspect]
     Dosage: 50 MG, QWK
     Route: 058
     Dates: start: 20010801, end: 20010101
  9. RISPERDAL [Concomitant]
     Dosage: 0.5 MG, UNK
  10. MOBIC [Concomitant]
     Dosage: 15 MG, UNK
  11. ADVIL LIQUI-GELS [Concomitant]
  12. PRILOSEC [Concomitant]
  13. RELAFIN [Concomitant]
     Dosage: 500 UNK, UNK
     Dates: end: 20050505
  14. LORAZEPAM [Concomitant]
     Dosage: 0.5 MG, BID
     Route: 048
  15. TEMAZEPAM [Concomitant]
     Dosage: 30 MG, QHS
  16. NORTRIPTYLINE HCL [Concomitant]
     Dosage: 25 MG, UNK
     Route: 048
  17. DARVOCET [Concomitant]
     Dosage: UNK, Q6H
  18. ENBREL [Suspect]
     Dosage: 50 MG, QWK
     Dates: start: 20050928, end: 20060407
  19. DICLOFENAC [Concomitant]
     Dosage: 75 MG, UNK
  20. ACCUPRIL [Concomitant]
     Dosage: 20 MG, BID
     Route: 048
  21. VYTORIN [Concomitant]
     Dosage: 80 MG, UNK
     Route: 048
  22. HUMALOG [Concomitant]
  23. NIRAVAM [Concomitant]
     Dosage: 0.5 MG, UNK
  24. DARVOCET [Concomitant]
     Dosage: UNK UNK, Q4H
  25. ENBREL [Suspect]
     Indication: RHEUMATOID ARTHRITIS
     Dosage: 25 MG, 2 TIMES/WK
     Dates: start: 20060407, end: 20080301
  26. METHOTREXATE [Concomitant]
     Dosage: 15 MG, QWK
     Route: 048
     Dates: start: 20050501, end: 20080301
  27. LANTUS [Concomitant]
  28. ACCUPRIL [Concomitant]
     Dosage: 40 MG, UNK
     Route: 048
  29. XANAX [Concomitant]
     Dosage: .025 UNK, UNK
  30. ALPRAZOLAM [Concomitant]
     Dosage: 0.5 MG, UNK
     Route: 048
  31. PAXIL [Concomitant]
  32. MAXZIDE [Concomitant]
     Dosage: UNK UNK, BID

REACTIONS (75)
  - RENAL FAILURE ACUTE [None]
  - GASTRITIS [None]
  - MUSCLE ATROPHY [None]
  - CONSTIPATION [None]
  - RASH [None]
  - PHARYNGITIS [None]
  - SLEEP DISORDER [None]
  - GASTROOESOPHAGEAL REFLUX DISEASE [None]
  - IMMUNOSUPPRESSION [None]
  - FEEDING TUBE COMPLICATION [None]
  - GASTRIC ANTRAL VASCULAR ECTASIA [None]
  - CHEST PAIN [None]
  - JOINT EFFUSION [None]
  - PARANASAL CYST [None]
  - BONE CYST [None]
  - CARDIAC MURMUR [None]
  - ATELECTASIS [None]
  - DIABETIC GASTROPARESIS [None]
  - ELECTROLYTE IMBALANCE [None]
  - HYPOTENSION [None]
  - DUODENITIS [None]
  - RESTLESS LEGS SYNDROME [None]
  - CATHETER SITE INFECTION [None]
  - CHOLELITHIASIS [None]
  - FAILURE TO THRIVE [None]
  - METABOLIC ACIDOSIS [None]
  - VITAMIN B12 DEFICIENCY [None]
  - HEART RATE INCREASED [None]
  - PEPTIC ULCER [None]
  - CACHEXIA [None]
  - ZYGOMYCOSIS [None]
  - ELECTROCARDIOGRAM ABNORMAL [None]
  - DIARRHOEA [None]
  - FIBROMYALGIA [None]
  - ANAEMIA OF CHRONIC DISEASE [None]
  - DEHYDRATION [None]
  - OESOPHAGEAL ULCER [None]
  - ABDOMINAL ADHESIONS [None]
  - DEPRESSION [None]
  - COLLAPSE OF LUNG [None]
  - PNEUMONIA [None]
  - OSTEOARTHRITIS [None]
  - MIGRAINE [None]
  - TARDIVE DYSKINESIA [None]
  - MALNUTRITION [None]
  - UTERINE CANCER [None]
  - LUNG NEOPLASM [None]
  - NERVE INJURY [None]
  - BLOOD CULTURE POSITIVE [None]
  - GASTROENTERITIS VIRAL [None]
  - NASAL SEPTUM DEVIATION [None]
  - NAUSEA [None]
  - SINUSITIS [None]
  - PERICARDIAL EFFUSION [None]
  - PULMONARY FIBROSIS [None]
  - CERVIX CARCINOMA [None]
  - VOCAL CORD PARALYSIS [None]
  - DYSPHAGIA [None]
  - RHEUMATOID ARTHRITIS [None]
  - BONE MARROW DISORDER [None]
  - PULMONARY GRANULOMA [None]
  - TEMPOROMANDIBULAR JOINT SYNDROME [None]
  - DECUBITUS ULCER [None]
  - NASAL POLYPS [None]
  - ACTIVITIES OF DAILY LIVING IMPAIRED [None]
  - ENDOCARDITIS [None]
  - URINARY TRACT INFECTION [None]
  - HERPES ZOSTER [None]
  - TUBULOINTERSTITIAL NEPHRITIS [None]
  - WEIGHT DECREASED [None]
  - ANXIETY [None]
  - URINARY HESITATION [None]
  - HAEMORRHOIDS [None]
  - FUNGAL OESOPHAGITIS [None]
  - MYOSITIS [None]
